FAERS Safety Report 7139420-3 (Version None)
Quarter: 2010Q4

REPORT INFORMATION
  Report Type: 
  Country: None (occurrence: None)
  Receive Date: 20101206
  Receipt Date: 20101123
  Transmission Date: 20110411
  Serious: Yes (Hospitalization)
  Sender: FDA-Public Use
  Company Number: SK-WATSON-2010-15357

PATIENT
  Age: 26 Year
  Sex: Female

DRUGS (1)
  1. TRELSTAR UNKNOWN STRENGTH (WATSON LABORATORIES) [Suspect]
     Indication: INFERTILITY FEMALE
     Dosage: UNK
     Route: 030

REACTIONS (2)
  - POLYMYOSITIS [None]
  - VASCULITIS [None]
